FAERS Safety Report 7252122-8 (Version None)
Quarter: 2011Q1

REPORT INFORMATION
  Report Type: 
  Country: None (occurrence: None)
  Receive Date: 20110128
  Receipt Date: 20100429
  Transmission Date: 20110831
  Serious: No
  Sender: FDA-Public Use
  Company Number: US-ABBOTT-10P-163-0642190-00

PATIENT
  Sex: Female

DRUGS (8)
  1. PREDNISONE [Concomitant]
     Indication: RHEUMATOID ARTHRITIS
     Route: 048
  2. VITAMIN B [Concomitant]
     Indication: VITAMIN SUPPLEMENTATION
  3. PERCOCET [Concomitant]
     Indication: PAIN
     Route: 048
  4. HUMIRA [Suspect]
     Indication: RHEUMATOID ARTHRITIS
  5. ADVAIR [Concomitant]
     Indication: NECK PAIN
     Route: 048
  6. KLONOPIN [Concomitant]
     Indication: NECK PAIN
  7. BONIVA [Concomitant]
     Indication: OSTEOPOROSIS
  8. SYNTHROID [Concomitant]
     Indication: HYPOTHYROIDISM

REACTIONS (4)
  - PAIN IN EXTREMITY [None]
  - SOMNOLENCE [None]
  - OEDEMA PERIPHERAL [None]
  - ARTHRALGIA [None]
